FAERS Safety Report 9338926 (Version 1)
Quarter: 2013Q2

REPORT INFORMATION
  Report Type: Spontaneous
  Country: US (occurrence: US)
  Receive Date: 20130610
  Receipt Date: 20130610
  Transmission Date: 20140414
  Serious: No
  Sender: FDA-Public Use
  Company Number: US-009507513-1305USA008472

PATIENT
  Sex: Male
  Weight: 77.98 kg

DRUGS (6)
  1. PEGINTRON [Suspect]
     Indication: HEPATITIS C
     Dosage: 120 MICROGRAM/0.5 ML, QW
     Route: 058
     Dates: start: 20130504
  2. PEGINTRON [Suspect]
     Dosage: 120 MICROGRAM/0.5 ML, QW
     Route: 058
     Dates: start: 20130427
  3. REBETOL [Suspect]
     Dosage: UNK
     Route: 048
  4. TELAPREVIR [Suspect]
     Dosage: UNK
  5. ONDANSETRON [Concomitant]
     Dosage: 32/50 ML, UNK
  6. BENAZEPRIL HYDROCHLORIDE [Concomitant]
     Dosage: 5 MG, UNK
     Route: 048

REACTIONS (5)
  - Pain [Unknown]
  - Injection site erythema [Unknown]
  - Wrong technique in drug usage process [Unknown]
  - Fatigue [Unknown]
  - Headache [Unknown]
